FAERS Safety Report 4704728-5 (Version None)
Quarter: 2005Q2

REPORT INFORMATION
  Report Type: 
  Country: None (occurrence: None)
  Receive Date: 20050630
  Receipt Date: 20050117
  Transmission Date: 20051028
  Serious: Yes (Hospitalization, Disabling)
  Sender: FDA-Public Use
  Company Number: US-MERCK-0501USA02663

PATIENT
  Age: 71 Year
  Sex: Male
  Weight: 102 kg

DRUGS (11)
  1. VIOXX [Suspect]
     Indication: ARTHRITIS
     Route: 048
     Dates: start: 19990101, end: 20030716
  2. VIOXX [Suspect]
     Route: 048
     Dates: start: 19990101, end: 20030716
  3. GLUCOPHAGE [Concomitant]
     Route: 065
  4. ASPIRIN [Concomitant]
     Route: 065
  5. PLAVIX [Concomitant]
     Route: 065
  6. LIPITOR [Concomitant]
     Route: 065
  7. ALTACE [Concomitant]
     Route: 065
  8. ZOCOR [Concomitant]
     Route: 065
  9. GLUCOTROL [Concomitant]
     Route: 065
  10. IBUPROFEN [Concomitant]
     Route: 065
     Dates: start: 19970101, end: 20030701
  11. CELEBREX [Concomitant]
     Route: 065

REACTIONS (12)
  - ANGINA PECTORIS [None]
  - ATHEROSCLEROSIS [None]
  - ATRIAL FIBRILLATION [None]
  - BLOOD CHOLESTEROL INCREASED [None]
  - BRAIN STEM INFARCTION [None]
  - CONSTIPATION [None]
  - CORONARY ARTERY DISEASE [None]
  - HEART RATE IRREGULAR [None]
  - HYPERTENSION [None]
  - MITRAL VALVE INCOMPETENCE [None]
  - NEUROPATHY PERIPHERAL [None]
  - OVERDOSE [None]
